FAERS Safety Report 12425488 (Version 3)
Quarter: 2016Q3

REPORT INFORMATION
  Report Type: Report from Study
  Country: PL (occurrence: PL)
  Receive Date: 20160601
  Receipt Date: 20160804
  Transmission Date: 20161109
  Serious: Yes (Hospitalization, Other)
  Sender: FDA-Public Use
  Company Number: PL-EISAI MEDICAL RESEARCH-EC-2015-005755

PATIENT
  Age: 70 Year
  Sex: Female
  Weight: 58.8 kg

DRUGS (17)
  1. LENVATINIB [Suspect]
     Active Substance: LENVATINIB
     Route: 048
     Dates: start: 20150917, end: 20160107
  2. CARVEDILOL. [Concomitant]
     Active Substance: CARVEDILOL
  3. LENVATINIB [Suspect]
     Active Substance: LENVATINIB
     Indication: THYROID CANCER
     Route: 048
     Dates: start: 20120920, end: 20131019
  4. LENVATINIB [Suspect]
     Active Substance: LENVATINIB
     Route: 048
     Dates: start: 20131030, end: 20140505
  5. LENVATINIB [Suspect]
     Active Substance: LENVATINIB
     Route: 048
     Dates: start: 20160116, end: 20160524
  6. RAMIPRIL. [Concomitant]
     Active Substance: RAMIPRIL
  7. LENVATINIB [Suspect]
     Active Substance: LENVATINIB
     Route: 048
     Dates: start: 20150210, end: 20150722
  8. STOPERAN [Concomitant]
  9. PLAVIX [Concomitant]
     Active Substance: CLOPIDOGREL BISULFATE
  10. SPIRONOL [Concomitant]
     Active Substance: SPIRONOLACTONE
  11. LENVATINIB [Suspect]
     Active Substance: LENVATINIB
     Route: 048
     Dates: start: 20140526, end: 20150128
  12. LENVATINIB [Suspect]
     Active Substance: LENVATINIB
     Route: 048
     Dates: start: 20150730, end: 20150911
  13. ACARD [Concomitant]
     Active Substance: ASPIRIN
  14. EPLERENON [Concomitant]
     Active Substance: EPLERENONE
  15. TORASEMID [Concomitant]
     Active Substance: TORSEMIDE
  16. PANTOPRAZ [Concomitant]
  17. EUTHYROX [Concomitant]
     Active Substance: LEVOTHYROXINE SODIUM

REACTIONS (3)
  - Angina pectoris [Recovered/Resolved]
  - Acute coronary syndrome [Recovered/Resolved]
  - Cardiac failure [Not Recovered/Not Resolved]

NARRATIVE: CASE EVENT DATE: 20150403
